FAERS Safety Report 8679535 (Version 2)
Quarter: 2013Q1

REPORT INFORMATION
  Report Type: Spontaneous
  Country: US (occurrence: None)
  Receive Date: 20120706
  Receipt Date: 20121220
  Transmission Date: 20140127
  Serious: Yes (Hospitalization)
  Sender: FDA-Public Use
  Company Number: 2012-247

PATIENT
  Age: 50 Year
  Sex: Male

DRUGS (1)
  1. PRIALT [Suspect]
     Indication: SPINAL PAIN
     Dosage: UNK UG, ONCE/HOUR, INTRATHECAL
     Route: 037
     Dates: start: 20120315, end: 20120502

REACTIONS (8)
  - Drug hypersensitivity [None]
  - Decreased appetite [None]
  - Rash [None]
  - Contusion [None]
  - Burning sensation [None]
  - Lethargy [None]
  - Headache [None]
  - Oedema peripheral [None]
